FAERS Safety Report 11679931 (Version 3)
Quarter: 2015Q4

REPORT INFORMATION
  Report Type: Spontaneous
  Country: US (occurrence: US)
  Receive Date: 20151027
  Receipt Date: 20151110
  Transmission Date: 20160304
  Serious: No
  Sender: FDA-Public Use
  Company Number: US-ELI_LILLY_AND_COMPANY-US201011006118

PATIENT
  Age: 77 Year
  Sex: Female

DRUGS (5)
  1. FORTEO [Suspect]
     Active Substance: TERIPARATIDE
     Dosage: 20 UG, QD
  2. FORTEO [Suspect]
     Active Substance: TERIPARATIDE
     Dosage: 20 UG, QD
  3. FORTEO [Suspect]
     Active Substance: TERIPARATIDE
     Dosage: 20 UG, QD
  4. FORTEO [Suspect]
     Active Substance: TERIPARATIDE
     Dosage: 20 UG, QD
  5. FORTEO [Suspect]
     Active Substance: TERIPARATIDE
     Indication: OSTEOPOROSIS
     Dosage: 20 UG, DAILY (1/D)
     Dates: start: 201010

REACTIONS (13)
  - Sleep disorder [Recovered/Resolved]
  - Tooth discolouration [Unknown]
  - Constipation [Unknown]
  - Memory impairment [Unknown]
  - Skin odour abnormal [Recovered/Resolved]
  - Nervousness [Recovered/Resolved]
  - Mental impairment [Recovered/Resolved]
  - Cataract operation [Unknown]
  - Breast mass [Recovered/Resolved]
  - Visual impairment [Unknown]
  - Tooth disorder [Recovered/Resolved]
  - Stress fracture [Not Recovered/Not Resolved]
  - Skin odour abnormal [Unknown]

NARRATIVE: CASE EVENT DATE: 201109
